FAERS Safety Report 6540400-7 (Version None)
Quarter: 2010Q1

REPORT INFORMATION
  Report Type: 
  Country: None (occurrence: None)
  Receive Date: 20100113
  Receipt Date: 20091231
  Transmission Date: 20100710
  Serious: Yes (Life-Threatening, Hospitalization)
  Sender: FDA-Public Use
  Company Number: 1-21203929

PATIENT
  Age: 40 Year
  Sex: Female
  Weight: 61.2356 kg

DRUGS (20)
  1. FENTANYL [Suspect]
     Indication: HIV INFECTION
     Dosage: 100 MCG/HR Q 2 DAYS, TRANSDERMAL
     Route: 062
     Dates: start: 20070101, end: 20090918
  2. FENTANYL [Suspect]
     Indication: PAIN IN EXTREMITY
     Dosage: 100 MCG/HR Q 2 DAYS, TRANSDERMAL
     Route: 062
     Dates: start: 20070101, end: 20090918
  3. FENTANYL-50 [Suspect]
     Indication: HIV INFECTION
     Dosage: 50 MCG/HR Q 2 DAYS, TRANSDERMAL
     Route: 062
     Dates: start: 20070101, end: 20090918
  4. FENTANYL-50 [Suspect]
     Indication: PAIN IN EXTREMITY
     Dosage: 50 MCG/HR Q 2 DAYS, TRANSDERMAL
     Route: 062
     Dates: start: 20070101, end: 20090918
  5. ABACAVIR [Concomitant]
  6. ASCORBIC ACID [Concomitant]
  7. BUPROPION [Concomitant]
  8. CALCITRIOL [Concomitant]
  9. CALCIUM ACETATE [Concomitant]
  10. CLONIDINE [Concomitant]
  11. DRONABINOL [Concomitant]
  12. EFAVIRENZ [Concomitant]
  13. FUROSEMIDE [Concomitant]
  14. GABAPENTIN [Concomitant]
  15. LAMIVUDINE [Concomitant]
  16. LOPINAVIR/RITONAVIR [Concomitant]
  17. METHADONE [Concomitant]
  18. IMMEDIATE RELEASE MORPHINE SULFATE [Concomitant]
  19. ENALAPRIL MALEATE [Concomitant]
  20. COLACE (DOCUSATE SODIUM) [Concomitant]

REACTIONS (7)
  - DIALYSIS [None]
  - INCORRECT DOSE ADMINISTERED [None]
  - INTENTIONAL DRUG MISUSE [None]
  - LOSS OF CONSCIOUSNESS [None]
  - RESPIRATORY ARREST [None]
  - SOMNOLENCE [None]
  - TREATMENT NONCOMPLIANCE [None]
